FAERS Safety Report 6083694-7 (Version None)
Quarter: 2009Q1

REPORT INFORMATION
  Report Type: 
  Country: None (occurrence: None)
  Receive Date: 20090218
  Receipt Date: 20090218
  Transmission Date: 20090719
  Serious: Yes (Other)
  Sender: FDA-Public Use
  Company Number: None

PATIENT
  Sex: Male
  Weight: 68.0396 kg

DRUGS (2)
  1. ZOLPIDEM [Suspect]
     Indication: INSOMNIA
     Dates: start: 20070101
  2. ZOLPIDEM [Suspect]
     Indication: NEURALGIA
     Dates: start: 20070101

REACTIONS (6)
  - ABDOMINAL DISCOMFORT [None]
  - DRUG INEFFECTIVE [None]
  - INSOMNIA [None]
  - NAUSEA [None]
  - NEURALGIA [None]
  - VOMITING [None]
